FAERS Safety Report 4661153-3 (Version None)
Quarter: 2005Q2

REPORT INFORMATION
  Report Type: 
  Country: None (occurrence: None)
  Receive Date: 20050427
  Receipt Date: 20050218
  Transmission Date: 20051028
  Serious: No
  Sender: FDA-Public Use
  Company Number: 212450

PATIENT
  Age: 58 Year
  Sex: Female
  Weight: 102.9 kg

DRUGS (12)
  1. XOLAIR [Suspect]
     Indication: ASTHMA
     Dosage: 300 MG, 1/MONTH, SUBCUTANEOUS
     Route: 058
     Dates: start: 20050110
  2. ADVAIR (FLUTICASONE PROPIONATE, SALEMETEROL XINAFOATE) [Concomitant]
  3. SINGULAIR [Concomitant]
  4. FLONASE [Concomitant]
  5. SYNTHROID [Concomitant]
  6. ESTRACE [Concomitant]
  7. ACIPHEX [Concomitant]
  8. PRILOSEC [Concomitant]
  9. ALBUTEROL INHALER (ALBUTEROL SULFATE, ALBUTEROL) [Concomitant]
  10. TYLENOL (ACETAMINPHEN) [Concomitant]
  11. MOTRIN (IBUPROFEN) [Concomitant]
  12. LORTAB (HYDROCODONE BITRATRATE, ACETAMINOPHEN) [Concomitant]

REACTIONS (1)
  - THROAT TIGHTNESS [None]
